FAERS Safety Report 8734490 (Version 2)
Quarter: 2012Q4

REPORT INFORMATION
  Report Type: 
  Country: ES (occurrence: ES)
  Receive Date: 20120821
  Receipt Date: 20120905
  Transmission Date: 20130627
  Serious: Yes (Life-Threatening, Other)
  Sender: FDA-Public Use
  Company Number: ES-ROCHE-1102485

PATIENT
  Sex: Male
  Weight: 3.05 kg

DRUGS (3)
  1. ALTEPLASE [Suspect]
     Indication: THROMBOSIS
     Dosage: bolus, indication reported as: RIGHT INTRA-ATRIAL THROMBUS
     Route: 040
  2. ALTEPLASE [Suspect]
     Route: 042
  3. PREDNISONE [Suspect]
     Indication: MATERNAL EXPOSURE DURING PREGNANCY
     Dosage: route reported as TFP

REACTIONS (6)
  - Cardiac failure [Unknown]
  - Ductus arteriosus premature closure [Unknown]
  - Apgar score low [Recovered/Resolved]
  - Pulmonary hypertension [Unknown]
  - Dilatation atrial [Unknown]
  - Vessel puncture site haematoma [Unknown]
